FAERS Safety Report 11376752 (Version 1)
Quarter: 2015Q3

REPORT INFORMATION
  Report Type: Report from Study
  Country: BR (occurrence: BR)
  Receive Date: 20150813
  Receipt Date: 20150813
  Transmission Date: 20151125
  Serious: Yes (Death, Hospitalization)
  Sender: FDA-Public Use
  Company Number: BR-ABBVIE-15K-020-1443018-00

PATIENT
  Sex: Male

DRUGS (8)
  1. MESALAZINE [Concomitant]
     Active Substance: MESALAMINE
     Indication: CROHN^S DISEASE
     Route: 048
     Dates: end: 201507
  2. LOSARTAN. [Concomitant]
     Active Substance: LOSARTAN
     Indication: BLOOD PRESSURE ABNORMAL
     Route: 048
     Dates: end: 201507
  3. METFORMIN [Concomitant]
     Active Substance: METFORMIN HYDROCHLORIDE
     Indication: DIABETES MELLITUS
     Route: 048
     Dates: end: 201507
  4. HUMIRA [Suspect]
     Active Substance: ADALIMUMAB
     Indication: CROHN^S DISEASE
     Route: 058
     Dates: start: 20140713, end: 201506
  5. AZATHIOPRINE. [Concomitant]
     Active Substance: AZATHIOPRINE
     Indication: CROHN^S DISEASE
     Route: 048
     Dates: end: 201507
  6. ENEMA (SODIUM PHOSPHATE, DIBASIC\SODIUM PHOSPHATE, MONOBASIC) [Concomitant]
     Active Substance: SODIUM PHOSPHATE, DIBASIC\SODIUM PHOSPHATE, MONOBASIC
     Indication: CROHN^S DISEASE
     Route: 054
     Dates: end: 201507
  7. CINARIZINE [Concomitant]
     Active Substance: CINNARIZINE
     Indication: LABYRINTHITIS
     Route: 048
  8. VERTIX [Concomitant]
     Indication: LABYRINTHITIS
     Route: 048

REACTIONS (8)
  - Intestinal haemorrhage [Unknown]
  - Pyrexia [Recovering/Resolving]
  - Asthenia [Unknown]
  - Swelling [Recovering/Resolving]
  - Crohn^s disease [Fatal]
  - Hypophagia [Unknown]
  - Hepatitis toxic [Fatal]
  - Diabetes mellitus [Fatal]
